FAERS Safety Report 13492286 (Version 9)
Quarter: 2021Q3

REPORT INFORMATION
  Report Type: Spontaneous
  Country: US (occurrence: US)
  Receive Date: 20170427
  Receipt Date: 20210929
  Transmission Date: 20211014
  Serious: No
  Sender: FDA-Public Use
  Company Number: US-PFIZER INC-2017125432

PATIENT
  Age: 55 Year
  Sex: Female
  Weight: 91 kg

DRUGS (9)
  1. LYRICA [Suspect]
     Active Substance: PREGABALIN
     Indication: PAIN
     Dosage: 300 MG, DAILY, (TWO 100 MG PREGABALIN AT NIGHT, ONE 50 MG AM ANDND ONE 50 MG NOON)
     Route: 048
  2. LYRICA [Suspect]
     Active Substance: PREGABALIN
     Dosage: 200 MG, 1X/DAY (EVERY NIGHT, QUANTITY: 90, REFILLS: 3)
     Route: 048
  3. LYRICA [Suspect]
     Active Substance: PREGABALIN
     Dosage: 250 MG, DAILY (ONE 200 MG ONE EACH NIGHT AND ONE 50 MG EVERY DAY)
     Route: 048
  4. LYRICA [Suspect]
     Active Substance: PREGABALIN
     Indication: ARTHRALGIA
     Dosage: 300 MG, DAILY
     Route: 048
  5. LYRICA [Suspect]
     Active Substance: PREGABALIN
     Dosage: 100 MG, 2X/DAY (ONE 100 MG IN AM AND ONE 100 MG IN PM)
     Route: 048
  6. LYRICA [Suspect]
     Active Substance: PREGABALIN
     Dosage: 50 MG, 1X/DAY (TAKE 1 CAPSULE (50 MG) BY ORAL ROUTE ONCE DAILY)
     Route: 048
  7. LYRICA [Suspect]
     Active Substance: PREGABALIN
     Dosage: 250 MG, DAILY (ONE 200 MG ONE DAILY AND ONE 50 MG DAILY)
     Route: 048
  8. LYRICA [Suspect]
     Active Substance: PREGABALIN
     Indication: PAIN IN EXTREMITY
     Dosage: 200 MG, DAILY (TAKE 1 CAPSULE ORAL DAILY)
     Route: 048
  9. LYRICA [Suspect]
     Active Substance: PREGABALIN
     Dosage: 200 MG EVERY NIGHT
     Route: 048

REACTIONS (5)
  - Somnolence [Unknown]
  - Insomnia [Unknown]
  - Off label use [Unknown]
  - Intentional product use issue [Unknown]
  - Therapeutic product effect incomplete [Unknown]

NARRATIVE: CASE EVENT DATE: 20160920
